FAERS Safety Report 10143353 (Version 1)
Quarter: 2014Q2

REPORT INFORMATION
  Report Type: Spontaneous
  Country: US (occurrence: US)
  Receive Date: 20140430
  Receipt Date: 20140430
  Transmission Date: 20141212
  Serious: No
  Sender: FDA-Public Use
  Company Number: US-009507513-1404USA015083

PATIENT
  Sex: Male

DRUGS (7)
  1. CLARITIN CHEWABLE TABLETS [Suspect]
     Indication: SEASONAL ALLERGY
     Dosage: UNK, UNKNOWN
     Route: 048
  2. CLARITIN CHEWABLE TABLETS [Suspect]
     Indication: RHINORRHOEA
  3. CLARITIN CHEWABLE TABLETS [Suspect]
     Indication: SINUS HEADACHE
  4. CLARITIN CHEWABLE TABLETS [Suspect]
     Indication: COUGH
  5. CLARITIN CHEWABLE TABLETS [Suspect]
     Indication: WHEEZING
  6. CLARITIN CHEWABLE TABLETS [Suspect]
     Indication: SNEEZING
  7. CLARITIN CHEWABLE TABLETS [Suspect]
     Indication: INSOMNIA

REACTIONS (1)
  - Drug ineffective [Unknown]
